FAERS Safety Report 20503788 (Version 1)
Quarter: 2022Q1

REPORT INFORMATION
  Report Type: Report from Study
  Country: CA (occurrence: CA)
  Receive Date: 20220222
  Receipt Date: 20220222
  Transmission Date: 20220423
  Serious: Yes (Hospitalization, Other)
  Sender: FDA-Public Use
  Company Number: CA-OTSUKA-2021_014956

PATIENT
  Sex: Female

DRUGS (2)
  1. CEDAZURIDINE\DECITABINE [Suspect]
     Active Substance: CEDAZURIDINE\DECITABINE
     Indication: Myelodysplastic syndrome
     Dosage: (35 MG DECITABINE AND 100 MG CEDAZURIDINE), QD (5 TABLETS/CYCLE)
     Route: 048
     Dates: start: 20210215
  2. CEDAZURIDINE\DECITABINE [Suspect]
     Active Substance: CEDAZURIDINE\DECITABINE
     Dosage: (35 MG DECITABINE AND 100 MG CEDAZURIDINE), QD (4 TABLETS/CYCLE)
     Route: 048
     Dates: start: 202108

REACTIONS (4)
  - Acute leukaemia [Unknown]
  - Neutrophil count decreased [Unknown]
  - Insomnia [Recovering/Resolving]
  - Product use issue [Unknown]
